FAERS Safety Report 23149664 (Version 1)
Quarter: 2023Q4

REPORT INFORMATION
  Report Type: Spontaneous
  Country: US (occurrence: None)
  Receive Date: 20231104
  Receipt Date: 20231104
  Transmission Date: 20240110
  Serious: Yes (Disabling)
  Sender: FDA-Public Use
  Company Number: None

PATIENT
  Age: 16 Year
  Sex: Male
  Weight: 87.75 kg

DRUGS (1)
  1. FINASTERIDE 0.1% / MINOXIDIL 5% [Suspect]
     Active Substance: FINASTERIDE\MINOXIDIL
     Route: 061
     Dates: end: 20230603

REACTIONS (6)
  - Alopecia [None]
  - Libido decreased [None]
  - Semen volume decreased [None]
  - Erectile dysfunction [None]
  - Gynaecomastia [None]
  - Depressed mood [None]

NARRATIVE: CASE EVENT DATE: 20230326
